FAERS Safety Report 24647412 (Version 2)
Quarter: 2025Q1

REPORT INFORMATION
  Report Type: Other
  Country: US (occurrence: US)
  Receive Date: 20241121
  Receipt Date: 20250303
  Transmission Date: 20250409
  Serious: No
  Sender: LUPIN
  Company Number: US-LUPIN PHARMACEUTICALS INC.-2024-11151

PATIENT

DRUGS (1)
  1. CELECOXIB [Suspect]
     Active Substance: CELECOXIB
     Indication: Product used for unknown indication
     Route: 065

REACTIONS (7)
  - Hypersensitivity [Unknown]
  - Dysgeusia [Recovered/Resolved]
  - Oral discomfort [Unknown]
  - Lip swelling [Unknown]
  - Tongue discomfort [Unknown]
  - Product use issue [Unknown]
  - Product substitution issue [Unknown]
